FAERS Safety Report 22531898 (Version 1)
Quarter: 2023Q2

REPORT INFORMATION
  Report Type: Spontaneous
  Country: US (occurrence: US)
  Receive Date: 20230607
  Receipt Date: 20230607
  Transmission Date: 20230722
  Serious: Yes (Other)
  Sender: FDA-Public Use
  Company Number: US-BRAINTREE LABORATORIES, INC.-2023BTE00383

PATIENT
  Age: 59 Year
  Sex: Female

DRUGS (2)
  1. MAGNESIUM SULFATE\POTASSIUM CHLORIDE\SODIUM SULFATE [Suspect]
     Active Substance: MAGNESIUM SULFATE\POTASSIUM CHLORIDE\SODIUM SULFATE
     Indication: Colonoscopy
  2. MAGNESIUM SULFATE\POTASSIUM CHLORIDE\SODIUM SULFATE [Suspect]
     Active Substance: MAGNESIUM SULFATE\POTASSIUM CHLORIDE\SODIUM SULFATE
     Indication: Oesophagogastroduodenoscopy

REACTIONS (1)
  - Gastritis haemorrhagic [Unknown]
